FAERS Safety Report 11648699 (Version 10)
Quarter: 2017Q3

REPORT INFORMATION
  Report Type: Spontaneous
  Country: US (occurrence: US)
  Receive Date: 20151021
  Receipt Date: 20170815
  Transmission Date: 20171127
  Serious: Yes (Hospitalization)
  Sender: FDA-Public Use
  Company Number: PHEH2015US020764

PATIENT
  Age: 79 Year
  Sex: Female

DRUGS (6)
  1. PROMACTA [Interacting]
     Active Substance: ELTROMBOPAG OLAMINE
     Dosage: 12.5 MG, (EVERY THREE DAYS/ EVERY FOUR DAYS)
     Route: 048
     Dates: start: 20150505
  2. PROMACTA [Interacting]
     Active Substance: ELTROMBOPAG OLAMINE
     Dosage: 12.5 MG, (EVERY 4 DAYS)
     Route: 048
     Dates: start: 20161029, end: 20170310
  3. PROMACTA [Suspect]
     Active Substance: ELTROMBOPAG OLAMINE
     Indication: IMMUNE THROMBOCYTOPENIC PURPURA
     Dosage: 12.5 MG, QD
     Route: 048
     Dates: start: 20150504
  4. PROMACTA [Interacting]
     Active Substance: ELTROMBOPAG OLAMINE
     Dosage: 12.5 MG, QD
     Route: 048
     Dates: start: 20151109
  5. PROMACTA [Interacting]
     Active Substance: ELTROMBOPAG OLAMINE
     Dosage: 12.5 MG, QD
     Route: 048
     Dates: start: 20161028
  6. ACETAMINOPHEN. [Interacting]
     Active Substance: ACETAMINOPHEN
     Indication: PRODUCT USED FOR UNKNOWN INDICATION
     Route: 065

REACTIONS (15)
  - Frequent bowel movements [Unknown]
  - Muscle spasms [Recovering/Resolving]
  - Functional gastrointestinal disorder [Unknown]
  - Confusional state [Unknown]
  - Mental status changes [Unknown]
  - Visual impairment [Recovering/Resolving]
  - Cough [Unknown]
  - Constipation [Recovering/Resolving]
  - Drug interaction [Unknown]
  - Sneezing [Unknown]
  - Urticaria [Recovering/Resolving]
  - Pain [Recovering/Resolving]
  - Alopecia [Recovering/Resolving]
  - Dysphonia [Unknown]
  - Cerebrovascular accident [Unknown]

NARRATIVE: CASE EVENT DATE: 20150607
